FAERS Safety Report 18436490 (Version 2)
Quarter: 2020Q4

REPORT INFORMATION
  Report Type: Spontaneous
  Country: FI (occurrence: FI)
  Receive Date: 20201028
  Receipt Date: 20201207
  Transmission Date: 20210114
  Serious: Yes (Hospitalization, Other)
  Sender: FDA-Public Use
  Company Number: FI-009507513-2010FIN010280

PATIENT
  Age: 68 Year
  Sex: Male

DRUGS (4)
  1. KEYTRUDA [Suspect]
     Active Substance: PEMBROLIZUMAB
     Indication: LARGE CELL LUNG CANCER
     Dosage: ABOUT EVERY 3 WEEKS
     Dates: start: 20200303, end: 20201006
  2. CARBOPLATIN. [Suspect]
     Active Substance: CARBOPLATIN
     Dosage: ABOUT EVERY THREE WEEKS
     Dates: start: 20200303, end: 20201006
  3. PEMETREXED DISODIUM [Suspect]
     Active Substance: PEMETREXED DISODIUM
     Dosage: ABOUT EVERY THREE WEEKS
     Dates: start: 20200303, end: 20201006
  4. CISPLATIN. [Suspect]
     Active Substance: CISPLATIN
     Dosage: ABOUT EVERY THREE WEEKS
     Dates: start: 20200303, end: 20201006

REACTIONS (11)
  - Pneumonia [Unknown]
  - Myelosuppression [Unknown]
  - Blood creatinine increased [Unknown]
  - Myositis [Recovered/Resolved]
  - Malignant neoplasm progression [Unknown]
  - Neutropenia [Unknown]
  - Anaemia [Unknown]
  - Asthenia [Unknown]
  - Renal failure [Unknown]
  - Pancytopenia [Unknown]
  - C-reactive protein increased [Unknown]

NARRATIVE: CASE EVENT DATE: 2020
